FAERS Safety Report 13697410 (Version 1)
Quarter: 2017Q2

REPORT INFORMATION
  Report Type: Spontaneous
  Country: US (occurrence: US)
  Receive Date: 20170628
  Receipt Date: 20170628
  Transmission Date: 20170830
  Serious: Yes (Hospitalization, Other)
  Sender: FDA-Public Use
  Company Number: US-APOTEX-2017AP013394

PATIENT
  Age: 82 Year
  Sex: Male

DRUGS (1)
  1. VALACYCLOVIR TABLETS USP [Suspect]
     Active Substance: VALACYCLOVIR HYDROCHLORIDE
     Indication: HERPES ZOSTER
     Dosage: 1 G, TID
     Route: 065

REACTIONS (2)
  - Incorrect dose administered [Unknown]
  - Toxic encephalopathy [Recovered/Resolved]
